FAERS Safety Report 19770664 (Version 1)
Quarter: 2021Q3

REPORT INFORMATION
  Report Type: Spontaneous
  Country: US (occurrence: US)
  Receive Date: 20210829
  Receipt Date: 20210829
  Transmission Date: 20211014
  Serious: Yes (Hospitalization)
  Sender: FDA-Public Use
  Company Number: None

PATIENT
  Age: 79 Year
  Sex: Female
  Weight: 80.29 kg

DRUGS (12)
  1. LASIX [Concomitant]
     Active Substance: FUROSEMIDE
  2. METOPROLOL. [Concomitant]
     Active Substance: METOPROLOL
  3. VITAMIN D [Concomitant]
     Active Substance: VITAMIN D NOS
  4. ELIQUIS [Concomitant]
     Active Substance: APIXABAN
  5. AMIODARONE [Concomitant]
     Active Substance: AMIODARONE
  6. ALDOMET [Concomitant]
     Active Substance: METHYLDOPA
  7. ATORVASTATIN [Concomitant]
     Active Substance: ATORVASTATIN
  8. POTASSIUM [Concomitant]
     Active Substance: POTASSIUM
  9. PREVACID [Concomitant]
     Active Substance: LANSOPRAZOLE
  10. PRO?VISION [Concomitant]
  11. SERTRALINE [Suspect]
     Active Substance: SERTRALINE HYDROCHLORIDE
     Dosage: QUANTITY:1 PILL  DOSAGE FORM;?
     Route: 048
  12. LOSARTAN. [Concomitant]
     Active Substance: LOSARTAN

REACTIONS (3)
  - Acute respiratory distress syndrome [None]
  - Pneumonia [None]
  - Eosinophilic pneumonia [None]

NARRATIVE: CASE EVENT DATE: 20130620
